FAERS Safety Report 23544795 (Version 1)
Quarter: 2024Q1

REPORT INFORMATION
  Report Type: Spontaneous
  Country: US (occurrence: US)
  Receive Date: 20240220
  Receipt Date: 20240220
  Transmission Date: 20240409
  Serious: No
  Sender: FDA-Public Use
  Company Number: US-009507513-2401USA016956

PATIENT
  Sex: Female

DRUGS (1)
  1. KEYTRUDA [Suspect]
     Active Substance: PEMBROLIZUMAB

REACTIONS (3)
  - Occupational exposure to product [Unknown]
  - Accidental exposure to product [Unknown]
  - No adverse event [Unknown]

NARRATIVE: CASE EVENT DATE: 20240130
